FAERS Safety Report 4342203-0 (Version None)
Quarter: 2004Q1

REPORT INFORMATION
  Report Type: 
  Country: None (occurrence: None)
  Receive Date: 20040329
  Receipt Date: 20031205
  Transmission Date: 20041129
  Serious: No
  Sender: FDA-Public Use
  Company Number: USA031254154

PATIENT
  Age: 50 Year
  Sex: Male

DRUGS (1)
  1. STRATTERA [Suspect]
     Indication: MULTIPLE SCLEROSIS
     Dosage: 40 MG/DAY
     Dates: start: 20031204, end: 20031204

REACTIONS (3)
  - DYSURIA [None]
  - MICTURITION URGENCY [None]
  - URINE ABNORMALITY [None]
